FAERS Safety Report 23853905 (Version 2)
Quarter: 2024Q3

REPORT INFORMATION
  Report Type: Report from Study
  Country: KR (occurrence: KR)
  Receive Date: 20240514
  Receipt Date: 20240710
  Transmission Date: 20241017
  Serious: Yes (Hospitalization)
  Sender: ACERUS PHARMACEUTICALS
  Company Number: KR-ACERUSPHRM-2024-KR-000002

PATIENT
  Age: 66 Year
  Sex: Male

DRUGS (20)
  1. NATESTO [Suspect]
     Active Substance: TESTOSTERONE
     Indication: Hypogonadism
     Route: 045
     Dates: start: 20230816, end: 20240407
  2. EXFORGE [Concomitant]
     Active Substance: AMLODIPINE BESYLATE\VALSARTAN
     Indication: Essential hypertension
     Dates: start: 20231116
  3. CLOSONE CAP [Concomitant]
     Indication: Angina unstable
     Dates: start: 20231116
  4. DILATREND SR TAB [Concomitant]
     Indication: Angina unstable
     Dates: start: 20231116
  5. Rytmonorm SR Cap [Concomitant]
     Route: 048
     Dates: start: 20230429
  6. Amaryl M tab [Concomitant]
     Indication: Type 2 diabetes mellitus
     Route: 048
     Dates: start: 20240408
  7. Suglat tab [Concomitant]
     Indication: Type 2 diabetes mellitus
     Route: 048
     Dates: start: 20240408
  8. Superpirin cap [Concomitant]
     Indication: Coronary artery disease
     Route: 048
     Dates: start: 20231007, end: 20231116
  9. Forxiga tab [Concomitant]
     Indication: Type 2 diabetes mellitus
     Route: 048
     Dates: start: 20231107, end: 20240407
  10. DIABEX [Concomitant]
     Active Substance: METFORMIN HYDROCHLORIDE
     Indication: Type 2 diabetes mellitus
     Route: 048
     Dates: start: 20231117, end: 20240108
  11. JANUMET XR ER TAB [Concomitant]
     Indication: Type 2 diabetes mellitus
     Dates: start: 20220819, end: 20231115
  12. Ilsung isoptin inj [Concomitant]
     Indication: Coronary artery disease
     Route: 042
     Dates: start: 20231116, end: 20231116
  13. Choongwae heparin sodium inj [Concomitant]
     Indication: Coronary artery disease
     Route: 042
     Dates: start: 20231116, end: 20231116
  14. DAEWOONG CILOSTAZOL SR CAP [Concomitant]
     Indication: Prophylaxis
     Dates: start: 20230816, end: 20231016
  15. PREGREL TAB [Concomitant]
     Indication: Acute myocardial infarction
     Dates: start: 20220429, end: 20231115
  16. AMOSARTAN XQ TAB [Concomitant]
     Indication: Essential hypertension
     Dates: start: 20220107, end: 20231115
  17. PARIET TAB [Concomitant]
     Indication: Gastritis prophylaxis
     Dates: start: 20230217, end: 20231016
  18. LIXIANA TAB [Concomitant]
     Indication: Atrial fibrillation
     Dates: start: 20210507, end: 20231016
  19. HUMALOG INJ [Concomitant]
     Indication: Type 2 diabetes mellitus
     Dates: start: 20231116, end: 20231116
  20. ROSUZET TAB [Concomitant]
     Indication: Coronary artery occlusion
     Dates: start: 20231116

REACTIONS (1)
  - Coronary artery disease [Recovered/Resolved]

NARRATIVE: CASE EVENT DATE: 20231010
